FAERS Safety Report 20483988 (Version 4)
Quarter: 2022Q1

REPORT INFORMATION
  Report Type: Report from Study
  Country: CN (occurrence: CN)
  Receive Date: 20220217
  Receipt Date: 20220331
  Transmission Date: 20220423
  Serious: Yes (Hospitalization)
  Sender: FDA-Public Use
  Company Number: CN-SHANGHAI LIANBIO DEVELOPMENT CO., LTD.-LIA-2022-000001

PATIENT
  Age: 59 Year
  Sex: Male
  Weight: 65 kg

DRUGS (2)
  1. INFIGRATINIB [Suspect]
     Active Substance: INFIGRATINIB
     Indication: Gastric cancer
     Dosage: 125 MILLIGRAM, QD
     Route: 048
     Dates: start: 20220114, end: 20220203
  2. INFIGRATINIB [Suspect]
     Active Substance: INFIGRATINIB
     Dosage: 125 MILLIGRAM, QD
     Route: 048
     Dates: start: 20220223

REACTIONS (1)
  - Ileus [Not Recovered/Not Resolved]

NARRATIVE: CASE EVENT DATE: 20220211
